FAERS Safety Report 12397265 (Version 1)
Quarter: 2016Q2

REPORT INFORMATION
  Report Type: Spontaneous
  Country: None (occurrence: None)
  Receive Date: 20160523
  Receipt Date: 20160523
  Transmission Date: 20160815
  Serious: Yes (Other)
  Sender: FDA-Public Use
  Company Number: None

PATIENT
  Age: 41 Year
  Sex: Female
  Weight: 67.13 kg

DRUGS (4)
  1. CYMBALTA [Suspect]
     Active Substance: DULOXETINE HYDROCHLORIDE
     Indication: FIBROMYALGIA
     Route: 048
  2. CRANBERRY EXTRACT [Concomitant]
     Active Substance: CRANBERRY JUICE
  3. FISH OIL [Concomitant]
     Active Substance: FISH OIL
  4. VITAMIN C [Concomitant]
     Active Substance: ASCORBIC ACID

REACTIONS (12)
  - Impaired driving ability [None]
  - Drug dose omission [None]
  - Paraesthesia [None]
  - Activities of daily living impaired [None]
  - Insomnia [None]
  - Crying [None]
  - Self-injurious ideation [None]
  - Suicidal ideation [None]
  - Anger [None]
  - Dizziness [None]
  - Paraesthesia oral [None]
  - Thinking abnormal [None]

NARRATIVE: CASE EVENT DATE: 20160416
